FAERS Safety Report 11790712 (Version 1)
Quarter: 2015Q4

REPORT INFORMATION
  Report Type: Spontaneous
  Country: US (occurrence: US)
  Receive Date: 20151201
  Receipt Date: 20151201
  Transmission Date: 20160305
  Serious: No
  Sender: FDA-Public Use
  Company Number: US-PFIZER INC-2015021948

PATIENT
  Age: 61 Year
  Sex: Male

DRUGS (19)
  1. PERIDEX [Concomitant]
     Active Substance: CHLORHEXIDINE GLUCONATE
     Dosage: UNK
  2. DERMOTIC [Concomitant]
     Active Substance: FLUOCINOLONE ACETONIDE
     Dosage: UNK
  3. ADVIL [Concomitant]
     Active Substance: IBUPROFEN
     Indication: PAIN
     Dosage: 800 MG, AS NEEDED (TAKE 1 TABLET BY MOUTH ONCE DAILY AS NEEDED)
  4. PRINIVIL [Concomitant]
     Active Substance: LISINOPRIL
     Dosage: 30 MG, DAILY
     Route: 048
  5. LOPRESSOR [Concomitant]
     Active Substance: METOPROLOL TARTRATE
     Dosage: 25 MG, 2X/DAY
     Route: 048
  6. KLOR-CON [Concomitant]
     Active Substance: POTASSIUM CHLORIDE
     Dosage: 20 MEQ, DAILY ((KLOR-CON M20) 20 MEQ TABLET)
     Route: 048
  7. SUTENT [Suspect]
     Active Substance: SUNITINIB MALATE
     Indication: RENAL CANCER STAGE IV
     Dosage: 50 MG, CYCLIC (28 DAYS ON/14 DAYS OFF/MAKE TAKE WITHOUT REGARD TO MEALS)
     Route: 048
     Dates: start: 20150915
  8. MOTRIN [Concomitant]
     Active Substance: IBUPROFEN
     Indication: PAIN
     Dosage: 800 MG, AS NEEDED (TAKE 1 TABLET BY MOUTH ONCE DAILY AS NEEDED)
  9. ZYLOPRIM [Concomitant]
     Active Substance: ALLOPURINOL
     Dosage: 100 MG, DAILY
     Route: 048
  10. SYNTHROID [Concomitant]
     Active Substance: LEVOTHYROXINE SODIUM
     Dosage: 75 ?G, DAILY
     Route: 048
  11. ULTRAM [Concomitant]
     Active Substance: TRAMADOL HYDROCHLORIDE
     Indication: PAIN
     Dosage: 50MG 1 TABLET ORAL EVERY 4 HOURS AS NEEDED
     Route: 048
  12. HYDRALAZINE [Concomitant]
     Active Substance: HYDRALAZINE HYDROCHLORIDE
     Dosage: UNK
  13. PHOS-NAK [Concomitant]
     Dosage: 3 DF, 2X/DAY (280-160-250 MG PO PACK PACKET; DOSAGE: TAKE 3 PACKETS BY MOUTH 2 TIMES DAILY)
     Route: 048
  14. UREA. [Concomitant]
     Active Substance: UREA
     Dosage: 40 %, 2X/DAY (APPLY TO AFFECTED AREA TWICE DAILY)
  15. IMODIUM [Concomitant]
     Active Substance: LOPERAMIDE HYDROCHLORIDE
     Dosage: 2 MG, AS NEEDED
     Route: 048
  16. LASIX [Concomitant]
     Active Substance: FUROSEMIDE
     Dosage: 40 MG, DAILY
     Route: 048
  17. PROTONIX [Concomitant]
     Active Substance: PANTOPRAZOLE SODIUM
     Dosage: 40 MG, DAILY
     Route: 048
  18. ALBUTEROL. [Concomitant]
     Active Substance: ALBUTEROL
     Dosage: UNK
  19. ZESTRIL [Concomitant]
     Active Substance: LISINOPRIL
     Dosage: 30 MG, DAILY
     Route: 048

REACTIONS (1)
  - Pain in extremity [Unknown]
